FAERS Safety Report 17396048 (Version 1)
Quarter: 2020Q1

REPORT INFORMATION
  Report Type: Spontaneous
  Country: US (occurrence: US)
  Receive Date: 20200210
  Receipt Date: 20200210
  Transmission Date: 20200409
  Serious: No
  Sender: FDA-Public Use
  Company Number: US-VERTEX PHARMACEUTICALS-2020-002114

PATIENT
  Age: 19 Year
  Sex: Female

DRUGS (2)
  1. TRIKAFTA [Suspect]
     Active Substance: ELEXACAFTOR\IVACAFTOR\TEZACAFTOR
     Indication: CYSTIC FIBROSIS
     Dosage: 100MG ELEXACAFTOR/50MG TEZACAFTOR/75MG IVACAFTOR AND 150MG IVACAFTOR, BID( 2 TABS IN AM 1 TAB IN PM)
     Route: 048
     Dates: start: 20200115
  2. AZTREONAM LYSINE [Suspect]
     Active Substance: AZTREONAM LYSINE
     Indication: CYSTIC FIBROSIS
     Dosage: 75MG, 28 DAYS ON 28 DAYS OFF, TID
     Dates: start: 20150609

REACTIONS (2)
  - Cough [Recovered/Resolved]
  - Increased bronchial secretion [Recovered/Resolved]

NARRATIVE: CASE EVENT DATE: 20200115
